FAERS Safety Report 17471857 (Version 1)
Quarter: 2020Q1

REPORT INFORMATION
  Report Type: Spontaneous
  Country: IT (occurrence: IT)
  Receive Date: 20200228
  Receipt Date: 20200228
  Transmission Date: 20200409
  Serious: Yes (Other)
  Sender: FDA-Public Use
  Company Number: IT-MICRO LABS LIMITED-ML2020-00483

PATIENT
  Age: 60 Year
  Sex: Female

DRUGS (8)
  1. CLOBAZAM. [Suspect]
     Active Substance: CLOBAZAM
     Indication: TEMPORAL LOBE EPILEPSY
  2. CARBAMAZEPINE. [Suspect]
     Active Substance: CARBAMAZEPINE
     Indication: TEMPORAL LOBE EPILEPSY
  3. CLOBAZAM. [Suspect]
     Active Substance: CLOBAZAM
     Indication: PSYCHOGENIC SEIZURE
  4. PREGABALIN. [Suspect]
     Active Substance: PREGABALIN
     Indication: TEMPORAL LOBE EPILEPSY
  5. PRIMIDONE. [Suspect]
     Active Substance: PRIMIDONE
     Indication: TEMPORAL LOBE EPILEPSY
  6. CARBAMAZEPINE. [Suspect]
     Active Substance: CARBAMAZEPINE
     Indication: PSYCHOGENIC SEIZURE
  7. PREGABALIN. [Suspect]
     Active Substance: PREGABALIN
     Indication: PSYCHOGENIC SEIZURE
  8. PRIMIDONE. [Suspect]
     Active Substance: PRIMIDONE
     Indication: PSYCHOGENIC SEIZURE

REACTIONS (1)
  - Drug ineffective [Unknown]
